FAERS Safety Report 13426997 (Version 2)
Quarter: 2017Q2

REPORT INFORMATION
  Report Type: Spontaneous
  Country: SE (occurrence: SE)
  Receive Date: 20170411
  Receipt Date: 20170529
  Transmission Date: 20170830
  Serious: Yes (Hospitalization, Disabling)
  Sender: FDA-Public Use
  Company Number: SE-ROCHE-1919271

PATIENT
  Age: 84 Year
  Sex: Female

DRUGS (8)
  1. ALVEDON [Concomitant]
     Active Substance: ACETAMINOPHEN
  2. CITALOPRAM [Concomitant]
     Active Substance: CITALOPRAM HYDROBROMIDE
  3. LUCENTIS [Suspect]
     Active Substance: RANIBIZUMAB
     Indication: NEOVASCULAR AGE-RELATED MACULAR DEGENERATION
     Route: 065
     Dates: start: 2014
  4. LUCENTIS [Suspect]
     Active Substance: RANIBIZUMAB
     Dosage: 7 WEEKS INTERVAL
     Route: 065
     Dates: start: 20160224, end: 20161129
  5. TROMBYL [Concomitant]
     Active Substance: ASPIRIN
  6. METOPROLOL. [Concomitant]
     Active Substance: METOPROLOL
  7. LOSARTAN. [Concomitant]
     Active Substance: LOSARTAN
  8. ALLOPURINOL. [Concomitant]
     Active Substance: ALLOPURINOL
     Route: 065

REACTIONS (1)
  - Cerebrovascular accident [Not Recovered/Not Resolved]

NARRATIVE: CASE EVENT DATE: 20161202
